FAERS Safety Report 6441143-0 (Version None)
Quarter: 2009Q4

REPORT INFORMATION
  Report Type: 
  Country: None (occurrence: None)
  Receive Date: 20091112
  Receipt Date: 20091027
  Transmission Date: 20100525
  Serious: Yes (Other)
  Sender: FDA-Public Use
  Company Number: 2009AC000347

PATIENT
  Age: 57 Year
  Sex: Female
  Weight: 61.6892 kg

DRUGS (15)
  1. DIGOXIN [Suspect]
     Dosage: 0.125 MG;QD;PO
     Route: 048
  2. DIGOXIN [Suspect]
     Dosage: 0.25 MG;QD;PO
     Route: 048
     Dates: start: 20081016
  3. AMOXICILLIN [Concomitant]
  4. LINCOCIN [Concomitant]
  5. KENALOG [Concomitant]
  6. KLOR-CON [Concomitant]
  7. QUINAPRIL [Concomitant]
  8. SERTRALINE HCL [Concomitant]
  9. CARVEDILOL [Concomitant]
  10. FUROSEMIDE [Concomitant]
  11. WARFARIN SODIUM [Concomitant]
  12. ZOCOR [Concomitant]
  13. MOMETASONE FUROATE [Concomitant]
  14. ZOLOFT [Concomitant]
  15. NASACORT [Concomitant]

REACTIONS (20)
  - ACUTE SINUSITIS [None]
  - ANXIETY [None]
  - CERUMEN IMPACTION [None]
  - CHEST DISCOMFORT [None]
  - CHEST PAIN [None]
  - COUGH [None]
  - DIZZINESS [None]
  - DYSPNOEA [None]
  - ECONOMIC PROBLEM [None]
  - EJECTION FRACTION DECREASED [None]
  - HEART RATE IRREGULAR [None]
  - HYPERTENSION [None]
  - INCORRECT DOSE ADMINISTERED [None]
  - MULTIPLE INJURIES [None]
  - NASAL CONGESTION [None]
  - NASOPHARYNGITIS [None]
  - PAIN [None]
  - PARAESTHESIA [None]
  - PHARYNGEAL INFLAMMATION [None]
  - VENTRICULAR HYPOKINESIA [None]
